FAERS Safety Report 8494470 (Version 2)
Quarter: 2013Q1

REPORT INFORMATION
  Report Type: Spontaneous
  Country: FR (occurrence: FR)
  Receive Date: 20120404
  Receipt Date: 20130313
  Transmission Date: 20140127
  Serious: Yes (Hospitalization)
  Sender: FDA-Public Use
  Company Number: FR-ROCHE-1051863

PATIENT
  Age: 31 Year
  Sex: Male

DRUGS (6)
  1. MABTHERA [Suspect]
     Indication: POLYMYOSITIS
     Route: 042
     Dates: start: 200909, end: 201107
  2. MABTHERA [Suspect]
     Route: 042
     Dates: start: 201004
  3. MABTHERA [Suspect]
     Route: 042
     Dates: start: 201107
  4. MABTHERA [Suspect]
     Route: 042
     Dates: start: 20110719
  5. PLAQUENIL [Suspect]
     Indication: POLYMYOSITIS
     Route: 048
     Dates: start: 20100901
  6. METHOTREXATE [Suspect]
     Indication: POLYMYOSITIS
     Route: 048

REACTIONS (2)
  - Neuropathy peripheral [Recovered/Resolved]
  - Peripheral paralysis [Recovered/Resolved]
